FAERS Safety Report 4720737-4 (Version None)
Quarter: 2005Q3

REPORT INFORMATION
  Report Type: 
  Country: None (occurrence: None)
  Receive Date: 20050721
  Receipt Date: 20050714
  Transmission Date: 20060218
  Serious: Yes (Hospitalization)
  Sender: FDA-Public Use
  Company Number: CH-GLAXOSMITHKLINE-B0388078A

PATIENT
  Age: 8 Year
  Sex: Female
  Weight: 33 kg

DRUGS (2)
  1. LAMICTAL [Suspect]
     Indication: PETIT MAL EPILEPSY
     Route: 048
     Dates: start: 20050528, end: 20050627
  2. NO CONCURRENT MEDICATION [Concomitant]

REACTIONS (15)
  - CHEILITIS [None]
  - HEPATIC TRAUMA [None]
  - HYPERSENSITIVITY [None]
  - HYPONATRAEMIA [None]
  - INAPPROPRIATE ANTIDIURETIC HORMONE SECRETION [None]
  - INFLAMMATION [None]
  - LEUKOCYTOSIS [None]
  - LYMPHOCYTOSIS [None]
  - OEDEMA [None]
  - OLIGURIA [None]
  - POLYURIA [None]
  - PYREXIA [None]
  - RASH [None]
  - RASH MACULO-PAPULAR [None]
  - URTICARIA GENERALISED [None]
